FAERS Safety Report 14314212 (Version 2)
Quarter: 2017Q4

REPORT INFORMATION
  Report Type: Report from Study
  Country: KR (occurrence: KR)
  Receive Date: 20171221
  Receipt Date: 20171228
  Transmission Date: 20180321
  Serious: Yes (Hospitalization)
  Sender: FDA-Public Use
  Company Number: KR-AMGEN-KORNI2017187049

PATIENT
  Age: 73 Year
  Sex: Female

DRUGS (2)
  1. SOLONDO [Concomitant]
     Active Substance: PREDNISOLONE
     Indication: END STAGE RENAL DISEASE
     Dosage: 5 MG, QD
     Route: 048
     Dates: start: 20120820
  2. DENOSUMAB [Suspect]
     Active Substance: DENOSUMAB
     Indication: OSTEOPOROSIS POSTMENOPAUSAL
     Dosage: 60 MG, Q6MO
     Route: 058
     Dates: start: 20170809

REACTIONS (2)
  - Pyrexia [Recovered/Resolved]
  - Asthenia [Recovered/Resolved]

NARRATIVE: CASE EVENT DATE: 20170901
